FAERS Safety Report 15476609 (Version 1)
Quarter: 2018Q4

REPORT INFORMATION
  Report Type: Spontaneous
  Country: CH (occurrence: CH)
  Receive Date: 20181009
  Receipt Date: 20181009
  Transmission Date: 20190205
  Serious: Yes (Other)
  Sender: FDA-Public Use
  Company Number: CH-AMGEN-CHESP2018128270

PATIENT
  Age: 69 Year
  Sex: Female
  Weight: 38 kg

DRUGS (5)
  1. ARANESP [Suspect]
     Active Substance: DARBEPOETIN ALFA
     Indication: NEPHROGENIC ANAEMIA
     Dosage: UPTO 100 MCG, Q2WK
     Route: 042
     Dates: start: 201704
  2. ARANESP [Suspect]
     Active Substance: DARBEPOETIN ALFA
     Dosage: 20 MCG, UNK
     Route: 042
     Dates: start: 2018
  3. ARANESP [Suspect]
     Active Substance: DARBEPOETIN ALFA
     Dosage: 40 MCG, Q2WK
     Route: 042
     Dates: start: 20180317, end: 20180319
  4. MIRCERA [Suspect]
     Active Substance: METHOXY POLYETHYLENE GLYCOL-EPOETIN BETA
     Indication: PRODUCT USED FOR UNKNOWN INDICATION
     Route: 065
  5. EPOETIN BETA [Suspect]
     Active Substance: ERYTHROPOIETIN
     Indication: PRODUCT USED FOR UNKNOWN INDICATION
     Route: 065

REACTIONS (1)
  - Influenza like illness [Recovered/Resolved]

NARRATIVE: CASE EVENT DATE: 20180317
